FAERS Safety Report 6433352-1 (Version None)
Quarter: 2009Q4

REPORT INFORMATION
  Report Type: 
  Country: None (occurrence: None)
  Receive Date: 20091105
  Receipt Date: 20091026
  Transmission Date: 20100525
  Serious: Yes (Hospitalization)
  Sender: FDA-Public Use
  Company Number: WAES 0910USA04169

PATIENT
  Age: 79 Year
  Sex: Female

DRUGS (10)
  1. FOSAMAX [Suspect]
     Indication: OSTEOPOROSIS
     Dosage: 35 MG/WKY; PO
     Route: 048
     Dates: start: 20071001, end: 20080117
  2. PREDNISONE [Suspect]
     Dosage: 10MG, DAILY; PO
     Route: 048
     Dates: start: 20071011
  3. ALFAROL [Concomitant]
  4. BLOPRESS [Concomitant]
  5. MILTAX [Concomitant]
  6. MUCOSTA [Concomitant]
  7. TAKEPRON OD [Concomitant]
  8. VOLTAREN [Concomitant]
  9. CALCIUM LACTATE [Concomitant]
  10. WARFARIN SODIUM [Concomitant]

REACTIONS (1)
  - PULMONARY TUBERCULOSIS [None]
